FAERS Safety Report 14268495 (Version 1)
Quarter: 2017Q4

REPORT INFORMATION
  Report Type: Spontaneous
  Country: CN (occurrence: CN)
  Receive Date: 20171211
  Receipt Date: 20171211
  Transmission Date: 20180321
  Serious: Yes (Other)
  Sender: FDA-Public Use
  Company Number: CN-PFIZER INC-2017527237

PATIENT
  Age: 83 Year
  Sex: Male

DRUGS (3)
  1. CORDARONE [Suspect]
     Active Substance: AMIODARONE HYDROCHLORIDE
     Indication: ATRIAL FIBRILLATION
     Dosage: 200 MG, 1X/DAY
     Route: 048
     Dates: start: 20170906, end: 20170911
  2. CORDARONE [Suspect]
     Active Substance: AMIODARONE HYDROCHLORIDE
     Indication: ATRIAL FIBRILLATION
     Dosage: 450 MG, 1X/DAY
     Route: 041
     Dates: start: 20170905, end: 20170906
  3. CORDARONE [Suspect]
     Active Substance: AMIODARONE HYDROCHLORIDE
     Indication: ATRIAL FIBRILLATION

REACTIONS (2)
  - Hypertension [Recovering/Resolving]
  - Atrioventricular block second degree [Recovering/Resolving]

NARRATIVE: CASE EVENT DATE: 20170911
